FAERS Safety Report 9841681 (Version 1)
Quarter: 2013Q4

REPORT INFORMATION
  Report Type: Spontaneous
  Country: US (occurrence: None)
  Receive Date: 20131219
  Receipt Date: 20131219
  Transmission Date: 20140711
  Serious: Yes (Hospitalization, Other)
  Sender: FDA-Public Use
  Company Number: 163-20785-12113774

PATIENT
  Age: 71 Year
  Sex: Male

DRUGS (1)
  1. THALOMID [Suspect]
     Indication: PROSTATE CANCER METASTATIC
     Dosage: 1 IN 1 D
     Route: 048
     Dates: start: 20120910, end: 20120910

REACTIONS (5)
  - Dehydration [None]
  - Asthenia [None]
  - Renal failure [None]
  - Delirium [None]
  - Confusional state [None]
